FAERS Safety Report 9111927 (Version 1)
Quarter: 2013Q1

REPORT INFORMATION
  Report Type: Spontaneous
  Country: US (occurrence: US)
  Receive Date: 20130219
  Receipt Date: 20130219
  Transmission Date: 20140127
  Serious: No
  Sender: FDA-Public Use
  Company Number: US-BRISTOL-MYERS SQUIBB COMPANY-16668329

PATIENT
  Age: 62 Year
  Sex: Female
  Weight: 77.1 kg

DRUGS (11)
  1. ORENCIA [Suspect]
     Indication: RHEUMATOID ARTHRITIS
     Dosage: 1 DF: 700/750 MG. LAST DOSE 28-MAY-2012
     Route: 042
     Dates: start: 20120430
  2. FOLIC ACID [Concomitant]
  3. METHOTREXATE [Concomitant]
     Dosage: 18AUG10, 12.5MG
     Dates: start: 20100915
  4. CALCIUM [Concomitant]
  5. ZANTAC [Concomitant]
  6. IRON SUPPLEMENT [Concomitant]
  7. TRAMADOL HCL [Concomitant]
  8. IBUPROFEN [Concomitant]
  9. CALCIUM + VITAMIN D [Concomitant]
  10. REMICADE [Concomitant]
  11. BENICAR [Concomitant]
     Dosage: 1DF = 20/12.5

REACTIONS (4)
  - Rheumatoid arthritis [Not Recovered/Not Resolved]
  - Carpal tunnel syndrome [Not Recovered/Not Resolved]
  - Oropharyngeal pain [Not Recovered/Not Resolved]
  - Pyrexia [Recovered/Resolved]
